FAERS Safety Report 16684192 (Version 2)
Quarter: 2019Q3

REPORT INFORMATION
  Report Type: Spontaneous
  Country: US (occurrence: US)
  Receive Date: 20190808
  Receipt Date: 20190912
  Transmission Date: 20191004
  Serious: Yes (Other)
  Sender: FDA-Public Use
  Company Number: US-CELGENEUS-USA-20190801069

PATIENT
  Sex: Male
  Weight: 98.52 kg

DRUGS (2)
  1. POMALYST [Suspect]
     Active Substance: POMALIDOMIDE
     Indication: PLASMA CELL MYELOMA
     Dosage: 3 MILLIGRAM
     Route: 048
     Dates: start: 20190619
  2. POMALYST [Suspect]
     Active Substance: POMALIDOMIDE
     Dosage: 2 MILLIGRAM
     Route: 048
     Dates: start: 201909

REACTIONS (5)
  - Dysgeusia [Recovered/Resolved]
  - White blood cell count decreased [Unknown]
  - Red blood cell count decreased [Unknown]
  - Diarrhoea [Recovered/Resolved]
  - Sleep disorder [Recovered/Resolved]

NARRATIVE: CASE EVENT DATE: 2019
